FAERS Safety Report 20446037 (Version 1)
Quarter: 2022Q1

REPORT INFORMATION
  Report Type: Spontaneous
  Country: US (occurrence: US)
  Receive Date: 20220208
  Receipt Date: 20220208
  Transmission Date: 20220423
  Serious: Yes (Other)
  Sender: FDA-Public Use
  Company Number: US-DSPHARMA-2022SUN000339

PATIENT
  Sex: Female

DRUGS (2)
  1. LATUDA [Suspect]
     Active Substance: LURASIDONE HYDROCHLORIDE
     Indication: Bipolar disorder
     Dosage: 40 MG
     Route: 048
  2. LATUDA [Suspect]
     Active Substance: LURASIDONE HYDROCHLORIDE
     Indication: Depression
     Dosage: 40 MG (TOOK A PALM FULL)
     Route: 048

REACTIONS (9)
  - Suspected suicide attempt [Unknown]
  - Drop attacks [Unknown]
  - Feeding disorder [Unknown]
  - Malaise [Unknown]
  - Paraesthesia [Unknown]
  - Hypersomnia [Unknown]
  - Dizziness [Unknown]
  - Restlessness [Unknown]
  - Intentional overdose [Unknown]

NARRATIVE: CASE EVENT DATE: 20220130
